FAERS Safety Report 9116725 (Version 1)
Quarter: 2013Q1

REPORT INFORMATION
  Report Type: Spontaneous
  Country: GB (occurrence: GB)
  Receive Date: 20130225
  Receipt Date: 20130225
  Transmission Date: 20140127
  Serious: Yes (Other)
  Sender: FDA-Public Use
  Company Number: GB-BAYER-2013-022793

PATIENT
  Age: 63 Year
  Sex: Male
  Weight: 81.64 kg

DRUGS (4)
  1. CIPROFLOXACIN [Suspect]
     Indication: URINARY TRACT INFECTION
     Dosage: 500 MG, UNK
     Route: 048
     Dates: start: 20130125, end: 20130205
  2. DUTASTERIDE [Concomitant]
  3. SOTALOL [Concomitant]
  4. SOTALOL [Concomitant]

REACTIONS (6)
  - Atrial fibrillation [Unknown]
  - Food interaction [Unknown]
  - Pollakiuria [Unknown]
  - Palpitations [Recovered/Resolved]
  - Heart rate irregular [Unknown]
  - Heart rate increased [Unknown]
